FAERS Safety Report 10189353 (Version 2)
Quarter: 2014Q2

REPORT INFORMATION
  Report Type: Spontaneous
  Country: US (occurrence: US)
  Receive Date: 20140522
  Receipt Date: 20140522
  Transmission Date: 20141212
  Serious: No
  Sender: FDA-Public Use
  Company Number: US-ASTRAZENECA-2013SE48449

PATIENT
  Sex: Female

DRUGS (11)
  1. PULMICORT FLEXHALER [Suspect]
     Indication: ASTHMA
     Dosage: 180 MCG ONE PUFF BID
     Route: 055
     Dates: start: 2006, end: 2011
  2. PULMICORT FLEXHALER [Suspect]
     Indication: ASTHMA
     Dosage: 180 MCG ONE PUFF BID
     Route: 055
     Dates: start: 2011, end: 20130522
  3. PULMICORT FLEXHALER [Suspect]
     Indication: ASTHMA
     Route: 055
     Dates: start: 20130523
  4. PRILOSEC [Suspect]
     Route: 048
  5. ZOLOFT [Concomitant]
  6. HYDROCHLOROTHIAZIDE [Concomitant]
  7. POTASSIUM [Concomitant]
  8. VITAMINS [Concomitant]
  9. CALCIUM [Concomitant]
  10. ASPIRIN [Concomitant]
     Dosage: 81 MG
  11. IBUPROPHEN [Concomitant]
     Dosage: PRN

REACTIONS (4)
  - Dry eye [Unknown]
  - Osteopenia [Unknown]
  - Multiple allergies [Unknown]
  - Cough [Unknown]
